FAERS Safety Report 23995194 (Version 1)
Quarter: 2024Q2

REPORT INFORMATION
  Report Type: Spontaneous
  Country: SE (occurrence: SE)
  Receive Date: 20240620
  Receipt Date: 20240620
  Transmission Date: 20240716
  Serious: Yes (Other)
  Sender: FDA-Public Use
  Company Number: None

PATIENT
  Age: 80 Year
  Sex: Female

DRUGS (1)
  1. ESCITALOPRAM [Suspect]
     Active Substance: ESCITALOPRAM OXALATE
     Indication: Product used for unknown indication
     Route: 065
     Dates: start: 202405

REACTIONS (8)
  - Sinus arrhythmia [Unknown]
  - Dizziness [Unknown]
  - Tremor [Unknown]
  - Vomiting [Unknown]
  - Anxiety [Unknown]
  - Nervousness [Unknown]
  - Feeding disorder [Unknown]
  - Nausea [Unknown]

NARRATIVE: CASE EVENT DATE: 20240501
